FAERS Safety Report 8451879 (Version 2)
Quarter: 2012Q4

REPORT INFORMATION
  Report Type: Spontaneous
  Country: DE (occurrence: None)
  Receive Date: 20120302
  Receipt Date: 20120913
  Transmission Date: 20130627
  Serious: Yes (Hospitalization, Other)
  Sender: FDA-Public Use
  Company Number: EU-2011-10223

PATIENT
  Sex: Male
  Weight: 90 kg

DRUGS (42)
  1. SAMSCA [Suspect]
     Indication: INAPPROPRIATE ANTIDIURETIC HORMONE SECRETION
     Route: 048
     Dates: start: 20110602, end: 20110602
  2. SAMSCA [Suspect]
     Indication: HYPONATREMIA
     Route: 048
     Dates: start: 20110602, end: 20110602
  3. SAMSCA [Suspect]
     Indication: NEOPLASM
     Route: 048
     Dates: start: 20110602, end: 20110602
  4. SAMSCA [Suspect]
     Indication: INAPPROPRIATE ANTIDIURETIC HORMONE SECRETION
     Dosage: 7.5 MG MILLIGRAM(S), DAILY DOSE, ORAL 15 MG MILLIGRAM(S), DAILY DOSE, ORAL
     Route: 048
     Dates: start: 20110604, end: 20110614
  5. SAMSCA [Suspect]
     Indication: HYPONATREMIA
     Dosage: 7.5 MG MILLIGRAM(S), DAILY DOSE, ORAL 15 MG MILLIGRAM(S), DAILY DOSE, ORAL
     Route: 048
     Dates: start: 20110604, end: 20110614
  6. SAMSCA [Suspect]
     Indication: NEOPLASM
     Dosage: 7.5 MG MILLIGRAM(S), DAILY DOSE, ORAL 15 MG MILLIGRAM(S), DAILY DOSE, ORAL
     Route: 048
     Dates: start: 20110604, end: 20110614
  7. SAMSCA [Suspect]
     Indication: INAPPROPRIATE ANTIDIURETIC HORMONE SECRETION
     Dosage: 7.5 MG MILLIGRAM(S), DAILY DOSE, ORAL 15 MG MILLIGRAM(S), DAILY DOSE, ORAL
     Route: 048
     Dates: start: 20110615, end: 20110621
  8. SAMSCA [Suspect]
     Indication: HYPONATREMIA
     Dosage: 7.5 MG MILLIGRAM(S), DAILY DOSE, ORAL 15 MG MILLIGRAM(S), DAILY DOSE, ORAL
     Route: 048
     Dates: start: 20110615, end: 20110621
  9. SAMSCA [Suspect]
     Indication: NEOPLASM
     Dosage: 7.5 MG MILLIGRAM(S), DAILY DOSE, ORAL 15 MG MILLIGRAM(S), DAILY DOSE, ORAL
     Route: 048
     Dates: start: 20110615, end: 20110621
  10. SAMSCA [Suspect]
     Indication: INAPPROPRIATE ANTIDIURETIC HORMONE SECRETION
     Dosage: 7.5 MG MILLIGRAM(S), DAILY DOSE, ORAL 15 MG MILLIGRAM(S), DAILY DOSE, ORAL
     Route: 048
     Dates: start: 20110531, end: 20110531
  11. SAMSCA [Suspect]
     Indication: HYPONATREMIA
     Dosage: 7.5 MG MILLIGRAM(S), DAILY DOSE, ORAL 15 MG MILLIGRAM(S), DAILY DOSE, ORAL
     Route: 048
     Dates: start: 20110531, end: 20110531
  12. SAMSCA [Suspect]
     Indication: NEOPLASM
     Dosage: 7.5 MG MILLIGRAM(S), DAILY DOSE, ORAL 15 MG MILLIGRAM(S), DAILY DOSE, ORAL
     Route: 048
     Dates: start: 20110531, end: 20110531
  13. SAMSCA [Suspect]
     Indication: INAPPROPRIATE ANTIDIURETIC HORMONE SECRETION
     Dosage: 7.5 MG MILLIGRAM(S), DAILY DOSE, ORAL 15 MG MILLIGRAM(S), DAILY DOSE, ORAL
     Route: 048
     Dates: start: 20110601, end: 20110601
  14. SAMSCA [Suspect]
     Indication: HYPONATREMIA
     Dosage: 7.5 MG MILLIGRAM(S), DAILY DOSE, ORAL 15 MG MILLIGRAM(S), DAILY DOSE, ORAL
     Route: 048
     Dates: start: 20110601, end: 20110601
  15. SAMSCA [Suspect]
     Indication: NEOPLASM
     Dosage: 7.5 MG MILLIGRAM(S), DAILY DOSE, ORAL 15 MG MILLIGRAM(S), DAILY DOSE, ORAL
     Route: 048
     Dates: start: 20110601, end: 20110601
  16. SAMSCA [Suspect]
     Indication: INAPPROPRIATE ANTIDIURETIC HORMONE SECRETION
     Dosage: 7.5 MG MILLIGRAM(S), DAILY DOSE, ORAL 15 MG MILLIGRAM(S), DAILY DOSE, ORAL
     Route: 048
     Dates: start: 20110621
  17. SAMSCA [Suspect]
     Indication: HYPONATREMIA
     Dosage: 7.5 MG MILLIGRAM(S), DAILY DOSE, ORAL 15 MG MILLIGRAM(S), DAILY DOSE, ORAL
     Route: 048
     Dates: start: 20110621
  18. SAMSCA [Suspect]
     Indication: NEOPLASM
     Dosage: 7.5 MG MILLIGRAM(S), DAILY DOSE, ORAL 15 MG MILLIGRAM(S), DAILY DOSE, ORAL
     Route: 048
     Dates: start: 20110621
  19. PANTOPRAZOLE [Concomitant]
  20. AMLODIPIN (AMLODIPIN) [Concomitant]
  21. ASPIRIN [Concomitant]
  22. RAMIPRIL [Concomitant]
  23. METAMIZOLE (METAMIZOLE) [Concomitant]
  24. IBUFLAM (IBUPROFEN) [Concomitant]
  25. CEFPODOXIM AL (CEFPODOXIME PROXETIL) [Concomitant]
  26. BERLINSULIN H BASAL (INSULIN HUMAN INJECTION, ISOPHANE) [Concomitant]
  27. ROCEPHIN [Concomitant]
  28. FOSAMAX [Concomitant]
  29. ACC (ACETYLCYSTEINE) TABLET [Concomitant]
  30. SULTANOL (SALBUTAMOL SULFATE) [Concomitant]
  31. ATROVENT [Concomitant]
  32. COTRIM FORTE (SULFAMETHOXAZOLE, TRIMETHOPRIM) TABLET [Concomitant]
  33. VESDIL (RAMIPRIL) [Concomitant]
  34. KALINOR (POTASSIUM CHLORIDE) TABLET [Concomitant]
  35. CLARITHROMYCIN [Concomitant]
  36. AMOXICILLIN [Concomitant]
  37. PANTOZOL [Concomitant]
  38. RAMIPRIL [Concomitant]
  39. HEPARIN [Concomitant]
  40. SALINE (SALINE) [Concomitant]
  41. BERLINSULIN H NORMAL (INSULIN) [Concomitant]
  42. DALTEPARIN (DALTEPARIN) [Concomitant]

REACTIONS (7)
  - Pancytopenia [None]
  - Vertigo [None]
  - Fall [None]
  - Pneumonia [None]
  - Catheter site infection [None]
  - Wrong technique in drug usage process [None]
  - Candidiasis [None]
